FAERS Safety Report 17147765 (Version 2)
Quarter: 2020Q2

REPORT INFORMATION
  Report Type: Spontaneous
  Country: US (occurrence: US)
  Receive Date: 20191212
  Receipt Date: 20200617
  Transmission Date: 20200713
  Serious: No
  Sender: FDA-Public Use
  Company Number: US-009507513-1912USA006089

PATIENT
  Age: 44 Year
  Sex: Female

DRUGS (1)
  1. KEYTRUDA [Suspect]
     Active Substance: PEMBROLIZUMAB
     Indication: COLON CANCER

REACTIONS (4)
  - Gastritis [Recovering/Resolving]
  - Colitis [Recovering/Resolving]
  - Product use in unapproved indication [Unknown]
  - Oesophagitis [Recovering/Resolving]
